FAERS Safety Report 6759485-8 (Version None)
Quarter: 2010Q2

REPORT INFORMATION
  Report Type: 
  Country: None (occurrence: None)
  Receive Date: 20100603
  Receipt Date: 20100519
  Transmission Date: 20101027
  Serious: Yes (Hospitalization)
  Sender: FDA-Public Use
  Company Number: 2010002023

PATIENT
  Age: 51 Year
  Sex: Female

DRUGS (3)
  1. TARCEVA [Suspect]
     Indication: NON-SMALL CELL LUNG CANCER
     Dosage: (150 MG,QD), ORAL
     Route: 048
     Dates: start: 20091205, end: 20100515
  2. CODEINE SUL TAB [Concomitant]
  3. ALPRAZOLAM [Concomitant]

REACTIONS (5)
  - BLOOD LACTATE DEHYDROGENASE INCREASED [None]
  - HAEMOPTYSIS [None]
  - HIRSUTISM [None]
  - PARONYCHIA [None]
  - SKIN HYPERPIGMENTATION [None]
